FAERS Safety Report 6061484-9 (Version None)
Quarter: 2009Q1

REPORT INFORMATION
  Report Type: 
  Country: None (occurrence: None)
  Receive Date: 20090202
  Receipt Date: 20090123
  Transmission Date: 20090719
  Serious: Yes (Hospitalization)
  Sender: FDA-Public Use
  Company Number: DE-AMGEN-UK330042

PATIENT
  Sex: Female

DRUGS (1)
  1. PANITUMUMAB [Suspect]
     Indication: SQUAMOUS CELL CARCINOMA
     Route: 042
     Dates: start: 20081117

REACTIONS (5)
  - ANAEMIA [None]
  - DEHYDRATION [None]
  - DISORIENTATION [None]
  - FEBRILE INFECTION [None]
  - WEIGHT DECREASED [None]
